FAERS Safety Report 18741649 (Version 4)
Quarter: 2021Q2

REPORT INFORMATION
  Report Type: Spontaneous
  Country: US (occurrence: US)
  Receive Date: 20210114
  Receipt Date: 20210513
  Transmission Date: 20210717
  Serious: No
  Sender: FDA-Public Use
  Company Number: US-PFIZER INC-2021022313

PATIENT
  Age: 48 Year
  Sex: Female
  Weight: 77.1 kg

DRUGS (16)
  1. IBRANCE [Suspect]
     Active Substance: PALBOCICLIB
     Dosage: 100MG, 21 DAYS ON 7 DAYS OFF
     Route: 048
     Dates: start: 20210127
  2. PHOSPHATES [SODIUM PHOSPHATE] [Concomitant]
     Active Substance: SODIUM PHOSPHATE
  3. IBRANCE [Suspect]
     Active Substance: PALBOCICLIB
     Dosage: UNK
  4. LUPRON DEPOT?PED [Concomitant]
     Active Substance: LEUPROLIDE ACETATE
  5. ANASTROZOLE. [Concomitant]
     Active Substance: ANASTROZOLE
     Dosage: 1 MG
  6. CALCITRATE [Concomitant]
     Active Substance: CALCIUM CITRATE
     Dosage: UNK (200(950)MG)
  7. COLACE [Concomitant]
     Active Substance: DOCUSATE SODIUM
     Dosage: 100 MG
  8. ZYRTEC [Concomitant]
     Active Substance: CETIRIZINE HYDROCHLORIDE
     Dosage: 10 MG
  9. HYDROCODONE [Concomitant]
     Active Substance: HYDROCODONE
  10. POTASSIUM CHLORIDE. [Concomitant]
     Active Substance: POTASSIUM CHLORIDE
  11. HYDROCHLOROTHIAZIDE. [Concomitant]
     Active Substance: HYDROCHLOROTHIAZIDE
     Dosage: 12.5 MG
  12. HYDROCODONE/ACETAMINOPHEN [Concomitant]
     Active Substance: ACETAMINOPHEN\HYDROCODONE
     Dosage: UNK
  13. XGEVA [Concomitant]
     Active Substance: DENOSUMAB
  14. PHOSPHATE [PHOSPHORIC ACID SODIUM] [Concomitant]
     Active Substance: SODIUM PHOSPHATE
  15. ACETAMINOPHEN. [Concomitant]
     Active Substance: ACETAMINOPHEN
  16. IBRANCE [Suspect]
     Active Substance: PALBOCICLIB
     Indication: BREAST CANCER FEMALE
     Dosage: 125 MG, CYCLIC (1 DAILY FOR 21 DAYS/ DAILY, 21 DAYS ON, 7 DAYS OFF)
     Route: 048
     Dates: start: 20201228

REACTIONS (6)
  - Blood count abnormal [Unknown]
  - Nausea [Unknown]
  - White blood cell count decreased [Unknown]
  - Dyspepsia [Unknown]
  - Product dose omission issue [Unknown]
  - Decreased appetite [Unknown]
